FAERS Safety Report 8494157-3 (Version None)
Quarter: 2012Q3

REPORT INFORMATION
  Report Type: 
  Country: None (occurrence: None)
  Receive Date: 20120709
  Receipt Date: 20120629
  Transmission Date: 20120928
  Serious: Yes (Other)
  Sender: FDA-Public Use
  Company Number: PHHY2012GB055919

PATIENT
  Age: 48 Year
  Sex: Male

DRUGS (2)
  1. METOPROLOL TARTRATE [Suspect]
     Dosage: 12.5 MG, UNK
  2. METOPROLOL TARTRATE [Suspect]

REACTIONS (4)
  - CARDIOGENIC SHOCK [None]
  - VENTRICULAR TACHYCARDIA [None]
  - EJECTION FRACTION DECREASED [None]
  - CONGESTIVE CARDIOMYOPATHY [None]
